FAERS Safety Report 15906636 (Version 3)
Quarter: 2019Q2

REPORT INFORMATION
  Report Type: Report from Study
  Country: US (occurrence: US)
  Receive Date: 20190204
  Receipt Date: 20190517
  Transmission Date: 20190711
  Serious: No
  Sender: FDA-Public Use
  Company Number: US-SA-2019SA024317

PATIENT
  Age: 68 Year
  Sex: Female

DRUGS (2)
  1. ALIROCUMAB [Suspect]
     Active Substance: ALIROCUMAB
     Indication: BLOOD CHOLESTEROL
     Dosage: 75 MG, QOW
     Route: 058
     Dates: start: 20181214
  2. ALIROCUMAB [Suspect]
     Active Substance: ALIROCUMAB
     Dosage: 75 MG, Q3W
     Route: 058

REACTIONS (6)
  - Myalgia [Unknown]
  - Device issue [Unknown]
  - Muscle twitching [Unknown]
  - Product dose omission [Unknown]
  - Neck pain [Unknown]
  - Arthralgia [Unknown]

NARRATIVE: CASE EVENT DATE: 201905
